FAERS Safety Report 5058028-7 (Version None)
Quarter: 2006Q3

REPORT INFORMATION
  Report Type: 
  Country: None (occurrence: None)
  Receive Date: 20060721
  Receipt Date: 20060518
  Transmission Date: 20061208
  Serious: No
  Sender: FDA-Public Use
  Company Number: US-GLAXOSMITHKLINE-A0606229A

PATIENT
  Age: 66 Year
  Sex: Female

DRUGS (15)
  1. AVANDIA [Suspect]
     Dosage: 4MG PER DAY
     Route: 048
     Dates: start: 20060401
  2. METFORMIN [Suspect]
     Route: 048
  3. LIPITOR [Concomitant]
  4. PREVACID [Concomitant]
  5. UNKNOWN MEDICATION [Concomitant]
  6. NORVASC [Concomitant]
  7. PLAVIX [Concomitant]
  8. ACTONEL [Concomitant]
  9. LORATADINE [Concomitant]
  10. MULTI-VITAMIN [Concomitant]
  11. COD LIVER OIL [Concomitant]
  12. BENADRYL [Concomitant]
  13. ASCORBIC ACID [Concomitant]
  14. VITAMIN B COMPLEX CAP [Concomitant]
  15. METOPROLOL [Concomitant]

REACTIONS (2)
  - BLOOD GLUCOSE INCREASED [None]
  - OEDEMA PERIPHERAL [None]
